FAERS Safety Report 11939655 (Version 2)
Quarter: 2016Q1

REPORT INFORMATION
  Report Type: Report from Study
  Country: FR (occurrence: FR)
  Receive Date: 20160122
  Receipt Date: 20160128
  Transmission Date: 20160526
  Serious: Yes (Hospitalization)
  Sender: FDA-Public Use
  Company Number: FR-ROCHE-1697952

PATIENT
  Age: 68 Year
  Sex: Male

DRUGS (5)
  1. COBIMETINIB [Suspect]
     Active Substance: COBIMETINIB
     Indication: MALIGNANT MELANOMA
     Route: 048
     Dates: start: 20151030, end: 20151222
  2. VEMURAFENIB [Suspect]
     Active Substance: VEMURAFENIB
     Indication: MALIGNANT MELANOMA
     Route: 048
     Dates: start: 20151017, end: 20151222
  3. FLECAINE [Concomitant]
     Active Substance: FLECAINIDE
     Route: 048
     Dates: start: 2014
  4. IRBESARTAN. [Concomitant]
     Active Substance: IRBESARTAN
     Indication: HYPERTENSION
     Route: 048
     Dates: start: 2014
  5. LEXOMIL [Concomitant]
     Active Substance: BROMAZEPAM
     Dosage: 1/4 TAB
     Route: 048
     Dates: start: 2014

REACTIONS (1)
  - Hepatitis [Recovering/Resolving]

NARRATIVE: CASE EVENT DATE: 20151221
